FAERS Safety Report 24560448 (Version 2)
Quarter: 2025Q3

REPORT INFORMATION
  Report Type: Spontaneous
  Country: US (occurrence: US)
  Receive Date: 20241029
  Receipt Date: 20250818
  Transmission Date: 20251021
  Serious: Yes (Other)
  Sender: CATALYST PHARMA
  Company Number: US-CATALYSTPHARMACEUTICALPARTNERS-US-CATA-24-01213

PATIENT
  Age: 72 Year
  Sex: Male

DRUGS (2)
  1. FYCOMPA [Suspect]
     Active Substance: PERAMPANEL
     Indication: Product used for unknown indication
     Dosage: 14 MG ONCE EVERY NIGHT AT BEDTIME
     Route: 048
  2. FYCOMPA [Suspect]
     Active Substance: PERAMPANEL
     Dosage: ONE (4 MG) TABLET EVERY NIGHT AT BEDTIME
     Route: 048
     Dates: end: 202505

REACTIONS (3)
  - Cerebrovascular accident [Unknown]
  - Malaise [Unknown]
  - Therapy cessation [Unknown]

NARRATIVE: CASE EVENT DATE: 20250501
